FAERS Safety Report 14349711 (Version 2)
Quarter: 2018Q1

REPORT INFORMATION
  Report Type: Report from Study
  Country: CO (occurrence: CO)
  Receive Date: 20180104
  Receipt Date: 20180108
  Transmission Date: 20180509
  Serious: Yes (Death, Hospitalization)
  Sender: FDA-Public Use
  Company Number: CO-JNJFOC-20171228536

PATIENT
  Age: 53 Year
  Sex: Male
  Weight: 60 kg

DRUGS (4)
  1. ACETAMINOPHEN. [Concomitant]
     Active Substance: ACETAMINOPHEN
     Indication: PREMEDICATION
  2. DIPHENHYDRAMINE. [Concomitant]
     Active Substance: DIPHENHYDRAMINE
     Indication: PREMEDICATION
     Dosage: 12 CC VO
  3. METHYLPREDNISOLONE. [Concomitant]
     Active Substance: METHYLPREDNISOLONE
     Indication: PREMEDICATION
     Route: 042
  4. DARZALEX [Suspect]
     Active Substance: DARATUMUMAB
     Indication: PLASMA CELL MYELOMA
     Route: 042
     Dates: start: 20171218, end: 20171231

REACTIONS (17)
  - Wheezing [Recovered/Resolved]
  - Oliguria [Recovering/Resolving]
  - Thrombocytopenia [Recovering/Resolving]
  - Hypertension [Unknown]
  - Respiratory arrest [Fatal]
  - Jaundice [Unknown]
  - Infusion related reaction [Unknown]
  - Blood pressure increased [Unknown]
  - Generalised oedema [Recovering/Resolving]
  - Choking sensation [Recovered/Resolved]
  - Liver function test abnormal [Unknown]
  - Body temperature increased [Recovered/Resolved]
  - Pyrexia [Recovering/Resolving]
  - Petechiae [Unknown]
  - Renal failure [Fatal]
  - Chills [Unknown]
  - Oedema peripheral [Unknown]

NARRATIVE: CASE EVENT DATE: 20171218
